FAERS Safety Report 23112380 (Version 2)
Quarter: 2024Q1

REPORT INFORMATION
  Report Type: Report from Study
  Country: US (occurrence: US)
  Receive Date: 20231027
  Receipt Date: 20240108
  Transmission Date: 20240410
  Serious: Yes (Death, Other)
  Sender: FDA-Public Use
  Company Number: US-ABBVIE-5462476

PATIENT
  Age: 85 Year
  Sex: Male

DRUGS (1)
  1. VENCLEXTA [Suspect]
     Active Substance: VENETOCLAX
     Indication: Acute myeloid leukaemia
     Route: 048
     Dates: start: 202310

REACTIONS (8)
  - Death [Fatal]
  - Limb discomfort [Unknown]
  - Musculoskeletal disorder [Unknown]
  - Complication associated with device [Unknown]
  - Diarrhoea [Unknown]
  - Sluggishness [Unknown]
  - Knee arthroplasty [Unknown]
  - Fatigue [Unknown]

NARRATIVE: CASE EVENT DATE: 20231001
